FAERS Safety Report 8892946 (Version 1)
Quarter: 2012Q4

REPORT INFORMATION
  Report Type: 
  Country: US (occurrence: US)
  Receive Date: 20121107
  Receipt Date: 20121107
  Transmission Date: 20130627
  Serious: No
  Sender: FDA-Public Use
  Company Number: US-AMGEN-USASP2011061059

PATIENT
  Age: 68 Year
  Sex: Female

DRUGS (5)
  1. ENBREL [Suspect]
     Indication: RHEUMATOID ARTHRITIS
     Dosage: 50 mg, qwk
     Dates: start: 20111110
  2. MOBIC [Concomitant]
     Dosage: UNK
  3. FLEXERIL [Concomitant]
     Dosage: UNK
  4. TYLENOL ARTHRITIS [Concomitant]
  5. METHOTREXATE [Concomitant]

REACTIONS (2)
  - Pain in extremity [Not Recovered/Not Resolved]
  - Urticaria [Recovered/Resolved]
